FAERS Safety Report 12945836 (Version 2)
Quarter: 2016Q4

REPORT INFORMATION
  Report Type: Spontaneous
  Country: JP (occurrence: JP)
  Receive Date: 20161116
  Receipt Date: 20161122
  Transmission Date: 20170207
  Serious: Yes (Other)
  Sender: FDA-Public Use
  Company Number: JP-PFIZER INC-2016527021

PATIENT
  Age: 74 Year
  Sex: Male
  Weight: 51 kg

DRUGS (32)
  1. LEVOFOLINATE [Suspect]
     Active Substance: LEVOLEUCOVORIN CALCIUM
     Dosage: 300 MG, 1X/DAY
     Route: 041
     Dates: start: 20150123, end: 20150123
  2. LEVOFOLINATE [Suspect]
     Active Substance: LEVOLEUCOVORIN CALCIUM
     Dosage: 300 MG, 1X/DAY
     Route: 041
     Dates: start: 20150309, end: 20150309
  3. CAMPTO [Suspect]
     Active Substance: IRINOTECAN
     Dosage: 220 MG, 1X/DAY
     Route: 041
     Dates: start: 20150407, end: 20150407
  4. CAMPTO [Suspect]
     Active Substance: IRINOTECAN
     Dosage: 170 MG, 1X/DAY
     Route: 041
     Dates: start: 20150512, end: 20150512
  5. ELPLAT [Suspect]
     Active Substance: OXALIPLATIN
     Dosage: 120 MG, 1X/DAY
     Route: 041
     Dates: start: 20150220, end: 20150220
  6. ELPLAT [Suspect]
     Active Substance: OXALIPLATIN
     Dosage: 120 MG, 1X/DAY
     Route: 041
     Dates: start: 20150309, end: 20150309
  7. LEVOFOLINATE [Suspect]
     Active Substance: LEVOLEUCOVORIN CALCIUM
     Dosage: 300 MG, 1X/DAY
     Route: 041
     Dates: start: 20150324, end: 20150324
  8. 5-FU /00098801/ [Concomitant]
     Active Substance: FLUOROURACIL
     Dosage: UNK
     Dates: start: 20141215, end: 20150609
  9. CAMPTO [Suspect]
     Active Substance: IRINOTECAN
     Dosage: 220 MG, 1X/DAY
     Route: 041
     Dates: start: 20150123, end: 20150123
  10. CAMPTO [Suspect]
     Active Substance: IRINOTECAN
     Dosage: 220 MG, 1X/DAY
     Route: 041
     Dates: start: 20150309, end: 20150309
  11. CAMPTO [Suspect]
     Active Substance: IRINOTECAN
     Dosage: 170 MG, 1X/DAY
     Route: 041
     Dates: start: 20150609, end: 20150609
  12. LEVOFOLINATE [Suspect]
     Active Substance: LEVOLEUCOVORIN CALCIUM
     Dosage: 300 MG, 1X/DAY
     Route: 041
     Dates: start: 20150206, end: 20150206
  13. LEVOFOLINATE [Suspect]
     Active Substance: LEVOLEUCOVORIN CALCIUM
     Dosage: 300 MG, 1X/DAY
     Route: 041
     Dates: start: 20150512, end: 20150512
  14. CAMPTO [Suspect]
     Active Substance: IRINOTECAN
     Indication: PANCREATIC CARCINOMA
     Dosage: 220 MG, 1X/DAY
     Route: 041
     Dates: start: 20141215, end: 20141215
  15. CAMPTO [Suspect]
     Active Substance: IRINOTECAN
     Dosage: 170 MG, 1X/DAY
     Route: 041
     Dates: start: 20150526, end: 20150526
  16. ELPLAT [Suspect]
     Active Substance: OXALIPLATIN
     Dosage: 120 MG, 1X/DAY
     Route: 041
     Dates: start: 20150206, end: 20150206
  17. ELPLAT [Suspect]
     Active Substance: OXALIPLATIN
     Dosage: 120 MG, 1X/DAY
     Route: 041
     Dates: start: 20150324, end: 20150324
  18. LEVOFOLINATE [Suspect]
     Active Substance: LEVOLEUCOVORIN CALCIUM
     Dosage: 300 MG, 1X/DAY
     Route: 041
     Dates: start: 20150220, end: 20150220
  19. LEVOFOLINATE [Suspect]
     Active Substance: LEVOLEUCOVORIN CALCIUM
     Dosage: 300 MG, 1X/DAY
     Route: 041
     Dates: start: 20150109, end: 20150109
  20. LEVOFOLINATE [Suspect]
     Active Substance: LEVOLEUCOVORIN CALCIUM
     Dosage: 300 MG, 1X/DAY
     Route: 041
     Dates: start: 20150421, end: 20150421
  21. LEVOFOLINATE [Suspect]
     Active Substance: LEVOLEUCOVORIN CALCIUM
     Dosage: 300 MG, 1X/DAY
     Route: 041
     Dates: start: 20150609, end: 20150609
  22. CAMPTO [Suspect]
     Active Substance: IRINOTECAN
     Dosage: 220 MG, 1X/DAY
     Route: 041
     Dates: start: 20150421, end: 20150421
  23. LEVOFOLINATE [Suspect]
     Active Substance: LEVOLEUCOVORIN CALCIUM
     Dosage: 300 MG, 1X/DAY
     Route: 041
     Dates: start: 20150407, end: 20150407
  24. CAMPTO [Suspect]
     Active Substance: IRINOTECAN
     Dosage: 220 MG, 1X/DAY
     Route: 041
     Dates: start: 20150109, end: 20150109
  25. CAMPTO [Suspect]
     Active Substance: IRINOTECAN
     Dosage: 220 MG, 1X/DAY
     Route: 041
     Dates: start: 20150220, end: 20150220
  26. CAMPTO [Suspect]
     Active Substance: IRINOTECAN
     Dosage: 220 MG, 1X/DAY
     Route: 041
     Dates: start: 20150324, end: 20150324
  27. LEVOFOLINATE [Suspect]
     Active Substance: LEVOLEUCOVORIN CALCIUM
     Dosage: 300 MG, 1X/DAY
     Route: 042
     Dates: start: 20150526, end: 20150526
  28. CAMPTO [Suspect]
     Active Substance: IRINOTECAN
     Dosage: 220 MG, 1X/DAY
     Route: 041
     Dates: start: 20150206, end: 20150206
  29. ELPLAT [Suspect]
     Active Substance: OXALIPLATIN
     Indication: PANCREATIC CARCINOMA
     Dosage: 120 MG, 1X/DAY
     Route: 041
     Dates: start: 20141215, end: 20141215
  30. ELPLAT [Suspect]
     Active Substance: OXALIPLATIN
     Dosage: 120 MG, 1X/DAY
     Route: 041
     Dates: start: 20150109, end: 20150109
  31. ELPLAT [Suspect]
     Active Substance: OXALIPLATIN
     Dosage: 120 MG, 1X/DAY
     Route: 041
     Dates: start: 20150123, end: 20150123
  32. LEVOFOLINATE [Suspect]
     Active Substance: LEVOLEUCOVORIN CALCIUM
     Indication: PANCREATIC CARCINOMA
     Dosage: 300 MG, 1X/DAY
     Route: 041
     Dates: start: 20141215, end: 20141215

REACTIONS (8)
  - Haemoglobin decreased [Unknown]
  - White blood cell count decreased [Unknown]
  - Diarrhoea [Recovered/Resolved]
  - Decreased appetite [Recovered/Resolved]
  - Platelet count decreased [Unknown]
  - Neutrophil count decreased [Unknown]
  - Peripheral sensory neuropathy [Recovered/Resolved]
  - Pyrexia [Recovered/Resolved]

NARRATIVE: CASE EVENT DATE: 20141225
